FAERS Safety Report 25837321 (Version 1)
Quarter: 2025Q3

REPORT INFORMATION
  Report Type: Spontaneous
  Country: US (occurrence: US)
  Receive Date: 20250923
  Receipt Date: 20250923
  Transmission Date: 20251021
  Serious: No
  Sender: MYLAN
  Company Number: US-MYLANLABS-2025M1079952

PATIENT

DRUGS (2)
  1. XANAX [Suspect]
     Active Substance: ALPRAZOLAM
     Indication: Sleep disorder
     Dosage: 0.5 MILLIGRAM, QD (1 TABLET, DAILY, AS NEEDED)
  2. XANAX [Suspect]
     Active Substance: ALPRAZOLAM
     Indication: Anxiety

REACTIONS (1)
  - Off label use [Unknown]
